FAERS Safety Report 13382176 (Version 1)
Quarter: 2017Q1

REPORT INFORMATION
  Report Type: Report from Study
  Country: US (occurrence: US)
  Receive Date: 20170329
  Receipt Date: 20170329
  Transmission Date: 20170429
  Serious: Yes (Other)
  Sender: FDA-Public Use
  Company Number: US-B.I. PHARMACEUTICALS,INC./RIDGEFIELD-2017-BI-015926

PATIENT

DRUGS (2)
  1. BUPIVACAINE. [Concomitant]
     Active Substance: BUPIVACAINE
     Indication: INGUINAL HERNIA REPAIR
     Dosage: 0.25 % DOSE: 1ML/KG
     Route: 065
  2. CLONIDINE. [Suspect]
     Active Substance: CLONIDINE
     Indication: INGUINAL HERNIA REPAIR
     Dosage: DOSE: 1MCG/KG
     Route: 065

REACTIONS (1)
  - Apnoea [Unknown]
